FAERS Safety Report 6304148-6 (Version None)
Quarter: 2009Q3

REPORT INFORMATION
  Report Type: 
  Country: None (occurrence: None)
  Receive Date: 20090810
  Receipt Date: 20090730
  Transmission Date: 20100115
  Serious: Yes (Death, Other)
  Sender: FDA-Public Use
  Company Number: IL-ALLERGAN-0907375US

PATIENT
  Age: 91 Year
  Sex: Male

DRUGS (2)
  1. BOTULINUM TOXIN TYPE A [Suspect]
     Indication: OESOPHAGEAL ACHALASIA
     Dosage: 80 UNITS, SINGLE
     Route: 030
  2. DIGOXIN [Concomitant]
     Dosage: 0.125 MG, QD

REACTIONS (2)
  - ATRIOVENTRICULAR BLOCK [None]
  - SEPSIS [None]
